FAERS Safety Report 6759800-5 (Version None)
Quarter: 2010Q2

REPORT INFORMATION
  Report Type: 
  Country: None (occurrence: None)
  Receive Date: 20100604
  Receipt Date: 20100520
  Transmission Date: 20101027
  Serious: Yes (Hospitalization, Disabling)
  Sender: FDA-Public Use
  Company Number: 220003N07FRA

PATIENT
  Age: 21 Year
  Sex: Female

DRUGS (1)
  1. SAIZEN [Suspect]

REACTIONS (1)
  - BRAIN ABSCESS [None]
